FAERS Safety Report 10037819 (Version 4)
Quarter: 2014Q2

REPORT INFORMATION
  Report Type: Spontaneous
  Country: TR (occurrence: TR)
  Receive Date: 20140326
  Receipt Date: 20140422
  Transmission Date: 20141212
  Serious: Yes (Hospitalization)
  Sender: FDA-Public Use
  Company Number: TR-AMGEN-TURSP2013082151

PATIENT
  Age: 62 Year
  Sex: Female

DRUGS (7)
  1. ENBREL [Suspect]
     Indication: PSORIASIS
     Dosage: 50 MG, 2 TIMES/WK
     Route: 058
     Dates: start: 201207, end: 201308
  2. ENBREL [Suspect]
     Dosage: 50 MG, 2 TIMES/WK
     Route: 058
     Dates: end: 201403
  3. CO-DIOVAN [Concomitant]
     Dosage: 320/25 MG, UNK
  4. DILATREND [Concomitant]
     Dosage: 25 MG, UNK
  5. FLUDEX-SR [Concomitant]
     Dosage: UNK
  6. ADALAT CRONO [Concomitant]
     Dosage: 60 MG, UNK
  7. CARDURAXL [Concomitant]
     Indication: HYPERTENSION
     Dosage: 8 MG, UNK

REACTIONS (4)
  - Wound [Unknown]
  - Skin ulcer [Not Recovered/Not Resolved]
  - Drug ineffective [Not Recovered/Not Resolved]
  - Injection site pain [Recovered/Resolved]
